FAERS Safety Report 13787398 (Version 1)
Quarter: 2017Q3

REPORT INFORMATION
  Report Type: Spontaneous
  Country: US (occurrence: US)
  Receive Date: 20170725
  Receipt Date: 20170725
  Transmission Date: 20171127
  Serious: No
  Sender: FDA-Public Use
  Company Number: US-JNJFOC-20170627066

PATIENT
  Age: 8 Week
  Sex: Female
  Weight: 9.07 kg

DRUGS (1)
  1. INFANTS TYLENOL [Suspect]
     Active Substance: ACETAMINOPHEN
     Indication: TEETHING
     Dosage: DOSE: 1.25-2.5ML
     Route: 048
     Dates: start: 20170623

REACTIONS (1)
  - Diarrhoea [Not Recovered/Not Resolved]
